FAERS Safety Report 6897258-6 (Version None)
Quarter: 2010Q3

REPORT INFORMATION
  Report Type: 
  Country: None (occurrence: None)
  Receive Date: 20100802
  Receipt Date: 20070511
  Transmission Date: 20110219
  Serious: Yes (Hospitalization, Other)
  Sender: FDA-Public Use
  Company Number: US-PFIZER INC-2007017424

PATIENT
  Sex: Female

DRUGS (2)
  1. LYRICA [Suspect]
     Indication: PAIN MANAGEMENT
     Route: 048
  2. GABAPENTIN [Suspect]
     Indication: NEURALGIA

REACTIONS (3)
  - DRUG INEFFECTIVE [None]
  - RENAL FAILURE ACUTE [None]
  - SEDATION [None]
